FAERS Safety Report 14812730 (Version 1)
Quarter: 2018Q2

REPORT INFORMATION
  Report Type: Spontaneous
  Country: US (occurrence: US)
  Receive Date: 20180426
  Receipt Date: 20180426
  Transmission Date: 20180711
  Serious: Yes (Life-Threatening)
  Sender: FDA-Public Use
  Company Number: US-BAXTER-2018BAX012018

PATIENT
  Age: 53 Year
  Sex: Male

DRUGS (1)
  1. OXACILLIN [Suspect]
     Active Substance: OXACILLIN SODIUM
     Indication: ENDOCARDITIS STAPHYLOCOCCAL
     Route: 065

REACTIONS (1)
  - Hypomagnesaemia [Recovered/Resolved]
